FAERS Safety Report 7908908-7 (Version None)
Quarter: 2011Q4

REPORT INFORMATION
  Report Type: 
  Country: None (occurrence: None)
  Receive Date: 20111111
  Receipt Date: 20111102
  Transmission Date: 20120403
  Serious: Yes (Hospitalization)
  Sender: FDA-Public Use
  Company Number: JP-BRISTOL-MYERS SQUIBB COMPANY-16214413

PATIENT
  Age: 33 Year
  Sex: Female

DRUGS (4)
  1. METHOTREXATE [Concomitant]
  2. RIMATIL [Concomitant]
  3. MEDROL [Concomitant]
  4. ORENCIA [Suspect]
     Indication: RHEUMATOID ARTHRITIS
     Dosage: LAST DOSE ON 5OCT11,NO OF INF:8
     Route: 041
     Dates: start: 20110404, end: 20111005

REACTIONS (1)
  - SUBARACHNOID HAEMORRHAGE [None]
